FAERS Safety Report 6105136-5 (Version None)
Quarter: 2009Q1

REPORT INFORMATION
  Report Type: 
  Country: None (occurrence: None)
  Receive Date: 20090306
  Receipt Date: 20090304
  Transmission Date: 20090719
  Serious: Yes (Other)
  Sender: FDA-Public Use
  Company Number: US-BIOGENIDEC-2007BI027094

PATIENT
  Age: 39 Year
  Sex: Female

DRUGS (1)
  1. TYSABRI [Suspect]
     Indication: MULTIPLE SCLEROSIS
     Route: 042
     Dates: start: 20071119, end: 20071218

REACTIONS (3)
  - ANAPHYLACTIC SHOCK [None]
  - DRUG SPECIFIC ANTIBODY PRESENT [None]
  - INFUSION RELATED REACTION [None]
